FAERS Safety Report 6810073-4 (Version None)
Quarter: 2010Q2

REPORT INFORMATION
  Report Type: 
  Country: None (occurrence: None)
  Receive Date: 20100630
  Receipt Date: 20100622
  Transmission Date: 20101027
  Serious: Yes (Hospitalization)
  Sender: FDA-Public Use
  Company Number: JP-ROCHE-708885

PATIENT
  Sex: Female
  Weight: 60 kg

DRUGS (19)
  1. TOCILIZUMAB [Suspect]
     Indication: RHEUMATOID ARTHRITIS
     Route: 042
     Dates: start: 20090212, end: 20090212
  2. TOCILIZUMAB [Suspect]
     Route: 042
     Dates: start: 20090312, end: 20090312
  3. TOCILIZUMAB [Suspect]
     Route: 042
     Dates: start: 20090409, end: 20090409
  4. TOCILIZUMAB [Suspect]
     Route: 042
     Dates: start: 20090507, end: 20090507
  5. TOCILIZUMAB [Suspect]
     Route: 042
     Dates: start: 20090604, end: 20090604
  6. TOCILIZUMAB [Suspect]
     Route: 042
     Dates: start: 20090702, end: 20090702
  7. TOCILIZUMAB [Suspect]
     Route: 042
     Dates: start: 20090729, end: 20100510
  8. METHOTREXATE [Suspect]
     Indication: RHEUMATOID ARTHRITIS
     Route: 048
     Dates: start: 20080811, end: 20100510
  9. ISONIAZID [Suspect]
     Indication: RHEUMATOID ARTHRITIS
     Dosage: FORM PERORAL AGENT
     Route: 048
  10. PREDNISOLONE [Suspect]
     Indication: RHEUMATOID ARTHRITIS
     Dosage: DOSE FORM PERORAL AGENT
     Route: 048
     Dates: end: 20090225
  11. PREDNISOLONE [Suspect]
     Route: 048
     Dates: start: 20090226, end: 20090312
  12. PREDNISOLONE [Suspect]
     Dosage: DOSE FORM PERORAL AGENT
     Route: 048
     Dates: start: 20090313, end: 20090603
  13. PREDNISOLONE [Suspect]
     Dosage: DOSE FORM PERORAL AGENT
     Route: 048
     Dates: start: 20090604, end: 20090701
  14. PREDNISOLONE [Suspect]
     Route: 048
     Dates: start: 20090702, end: 20090728
  15. PREDNISOLONE [Suspect]
     Dosage: PERORAL AGENT
     Route: 048
     Dates: start: 20090729
  16. PREDNISOLONE [Suspect]
     Route: 048
     Dates: start: 20100308
  17. ETODOLAC [Concomitant]
     Indication: DRUG USE FOR UNKNOWN INDICATION
     Route: 048
  18. FOLIAMIN [Concomitant]
     Indication: DRUG USE FOR UNKNOWN INDICATION
     Dosage: PERORAL AGENT
     Route: 048
  19. SOLETON [Concomitant]
     Route: 048
     Dates: start: 20090827, end: 20100610

REACTIONS (7)
  - BLOOD IMMUNOGLOBULIN M ABNORMAL [None]
  - EPSTEIN-BARR VIRUS ANTIBODY POSITIVE [None]
  - HEPATIC FUNCTION ABNORMAL [None]
  - HEPATITIS A ANTIBODY POSITIVE [None]
  - HEPATITIS ACUTE [None]
  - HEPATITIS VIRAL [None]
  - PNEUMONIA [None]
